FAERS Safety Report 21264792 (Version 1)
Quarter: 2022Q3

REPORT INFORMATION
  Report Type: Spontaneous
  Country: US (occurrence: None)
  Receive Date: 20220826
  Receipt Date: 20220826
  Transmission Date: 20221027
  Serious: No
  Sender: FDA-Public Use
  Company Number: None

PATIENT
  Age: 57 Year
  Sex: Male

DRUGS (1)
  1. SULFUR HEXAFLUORIDE [Suspect]
     Active Substance: SULFUR HEXAFLUORIDE
     Indication: Cardiovascular disorder
     Dosage: OTHER STRENGTH : 25MG/VIL;?FREQUENCY : ONCE;?
     Route: 042
     Dates: start: 20200820, end: 20220820

REACTIONS (3)
  - Rash [None]
  - Dizziness [None]
  - Contrast media reaction [None]

NARRATIVE: CASE EVENT DATE: 20220820
